FAERS Safety Report 23057237 (Version 1)
Quarter: 2023Q4

REPORT INFORMATION
  Report Type: Spontaneous
  Country: SG (occurrence: SG)
  Receive Date: 20231012
  Receipt Date: 20231012
  Transmission Date: 20240109
  Serious: Yes (Other)
  Sender: FDA-Public Use
  Company Number: SG-SA-SAC20231010000580

PATIENT

DRUGS (1)
  1. DUPILUMAB [Suspect]
     Active Substance: DUPILUMAB
     Dosage: 4 DOSE
     Route: 065
     Dates: start: 202302, end: 202303

REACTIONS (1)
  - Hepatic fibrosis [Unknown]

NARRATIVE: CASE EVENT DATE: 20230101
